FAERS Safety Report 4627501-5 (Version None)
Quarter: 2005Q1

REPORT INFORMATION
  Report Type: 
  Country: None (occurrence: None)
  Receive Date: 20050330
  Receipt Date: 20030716
  Transmission Date: 20050727
  Serious: Yes (Death)
  Sender: FDA-Public Use
  Company Number: 5724

PATIENT
  Age: 50 Year
  Sex: Male

DRUGS (3)
  1. FLUOROURACIL [Suspect]
     Indication: GASTRIC CANCER
     Dosage: 2400 MG/M2 PER_CYCLE, IV
     Route: 042
  2. DOXORUBICIN HYDROCHLORIDE [Suspect]
     Indication: GASTRIC CANCER
     Dosage: 60 MG/M2 PER_CYCLE, IV
     Route: 042
  3. MITOMYCIN [Suspect]
     Indication: GASTRIC CANCER
     Dosage: 10 MG/M2 PER_CYCLE, IV
     Route: 042

REACTIONS (9)
  - ANAEMIA [None]
  - BLOOD LACTATE DEHYDROGENASE INCREASED [None]
  - COMA [None]
  - DIARRHOEA [None]
  - LEUKOPENIA [None]
  - NERVOUS SYSTEM DISORDER [None]
  - PROCEDURAL COMPLICATION [None]
  - PYREXIA [None]
  - THROMBOCYTOPENIA [None]
